FAERS Safety Report 10231258 (Version 1)
Quarter: 2014Q2

REPORT INFORMATION
  Report Type: Spontaneous
  Country: US (occurrence: US)
  Receive Date: 20140611
  Receipt Date: 20140611
  Transmission Date: 20141212
  Serious: Yes (Hospitalization)
  Sender: FDA-Public Use
  Company Number: US-ABBVIE-14P-163-1245252-00

PATIENT
  Age: 59 Year
  Sex: Female

DRUGS (10)
  1. SYNTHROID [Suspect]
     Indication: THYROID DISORDER
  2. CORTISONE [Suspect]
     Indication: PERIARTHRITIS
     Dosage: CORTISONE INJECTION OF SHOULDER JOINTS
     Dates: start: 20140603
  3. TOPIRAMATE [Concomitant]
     Indication: SLEEP DISORDER THERAPY
  4. NEURONTIN [Concomitant]
     Indication: NEURALGIA
  5. NEURONTIN [Concomitant]
     Indication: FIBROMYALGIA
  6. GLIPIZIDE XL [Concomitant]
     Indication: DIABETES MELLITUS
  7. RAMIPRIL [Concomitant]
     Indication: HYPERTENSION
  8. BUTRANS [Concomitant]
     Indication: MUSCULOSKELETAL PAIN
  9. ZOLOFT [Concomitant]
     Indication: DEPRESSION
  10. CRESTOR [Concomitant]
     Indication: BLOOD CHOLESTEROL INCREASED

REACTIONS (5)
  - Blood glucose increased [Recovered/Resolved]
  - Nausea [Recovering/Resolving]
  - Musculoskeletal discomfort [Unknown]
  - Periarthritis [Not Recovered/Not Resolved]
  - Vomiting [Recovered/Resolved]
